FAERS Safety Report 6998116-9 (Version None)
Quarter: 2010Q3

REPORT INFORMATION
  Report Type: 
  Country: None (occurrence: None)
  Receive Date: 20100920
  Receipt Date: 20070706
  Transmission Date: 20110219
  Serious: Yes (Other)
  Sender: FDA-Public Use
  Company Number: US-ASTRAZENECA-2007UW04988

PATIENT
  Sex: Female
  Weight: 68 kg

DRUGS (11)
  1. SEROQUEL [Suspect]
     Route: 048
     Dates: start: 20040101
  2. SKELAXIN [Concomitant]
     Dates: start: 20040101
  3. PERCOCET [Concomitant]
     Dosage: 10/325 MG TWICE A DAY
     Dates: start: 20040101
  4. DIGITEK/LANOXIN [Concomitant]
     Dates: start: 20020101
  5. COREG [Concomitant]
     Dates: start: 20040101
  6. REMERON [Concomitant]
     Dates: start: 20040101
  7. ATIVAN [Concomitant]
     Dosage: 1-2 MG
     Route: 048
     Dates: start: 20030101
  8. NEURONTIN [Concomitant]
     Route: 048
     Dates: start: 20030101
  9. RESTORIL [Concomitant]
     Route: 048
     Dates: start: 20030101
  10. PRINIVIL/ ZESTRIL [Concomitant]
     Dosage: 5-10 MG DAILY
     Route: 048
     Dates: start: 20030101
  11. IMITREX [Concomitant]
     Indication: MIGRAINE
     Dosage: 100-150 MG
     Route: 048
     Dates: start: 20020101

REACTIONS (3)
  - DIABETES MELLITUS [None]
  - DIABETIC KETOACIDOSIS [None]
  - PANCREATITIS [None]
